FAERS Safety Report 14509065 (Version 3)
Quarter: 2021Q4

REPORT INFORMATION
  Report Type: Spontaneous
  Country: US (occurrence: US)
  Receive Date: 20180209
  Receipt Date: 20211022
  Transmission Date: 20220303
  Serious: Yes (Disabling, Other)
  Sender: FDA-Public Use
  Company Number: US-TEVA-2018-US-856883

PATIENT
  Age: 49 Year
  Sex: Female
  Weight: 72.5 kg

DRUGS (3)
  1. DOCETAXEL [Suspect]
     Active Substance: DOCETAXEL
     Indication: Triple negative breast cancer
     Dosage: NUMBER OF CYCLE - 03, FREQUENCY - EVERY THREE WEEKS
     Route: 065
     Dates: start: 20141027, end: 20141208
  2. DOCETAXEL [Suspect]
     Active Substance: DOCETAXEL
     Dosage: NUMBER OF CYCLE - 03, FREQUENCY - EVERY THREE WEEKS
     Route: 065
     Dates: start: 20141027, end: 20141208
  3. DOCETAXEL [Suspect]
     Active Substance: DOCETAXEL
     Dosage: NUMBER OF CYCLE - 03, FREQUENCY - EVERY THREE WEEKS
     Route: 065
     Dates: start: 20141027, end: 20141208

REACTIONS (13)
  - Alopecia areata [Not Recovered/Not Resolved]
  - Madarosis [Not Recovered/Not Resolved]
  - Leukopenia [Recovered/Resolved]
  - Neuropathy peripheral [Recovering/Resolving]
  - Hair texture abnormal [Not Recovered/Not Resolved]
  - Hair colour changes [Not Recovered/Not Resolved]
  - Hypoaesthesia [Not Recovered/Not Resolved]
  - Paraesthesia [Not Recovered/Not Resolved]
  - Fatigue [Recovering/Resolving]
  - Balance disorder [Not Recovered/Not Resolved]
  - Back pain [Not Recovered/Not Resolved]
  - Pain in extremity [Not Recovered/Not Resolved]
  - Gait disturbance [Not Recovered/Not Resolved]

NARRATIVE: CASE EVENT DATE: 20150301
